FAERS Safety Report 5113593-6 (Version None)
Quarter: 2006Q3

REPORT INFORMATION
  Report Type: 
  Country: None (occurrence: None)
  Receive Date: 20060921
  Receipt Date: 20060830
  Transmission Date: 20061208
  Serious: Yes (Hospitalization, Other)
  Sender: FDA-Public Use
  Company Number: 2005133676

PATIENT
  Age: 62 Year
  Sex: Male

DRUGS (3)
  1. BEXTRA [Suspect]
     Indication: DRUG USE FOR UNKNOWN INDICATION
  2. BEXTRA [Suspect]
     Indication: ILL-DEFINED DISORDER
  3. VIOXX [Suspect]
     Indication: ILL-DEFINED DISORDER

REACTIONS (4)
  - HEART INJURY [None]
  - MYOCARDIAL INFARCTION [None]
  - THROMBOSIS [None]
  - VASCULAR INJURY [None]
